FAERS Safety Report 9983576 (Version 6)
Quarter: 2014Q2

REPORT INFORMATION
  Report Type: Spontaneous
  Country: JP (occurrence: JP)
  Receive Date: 20140307
  Receipt Date: 20140408
  Transmission Date: 20141212
  Serious: Yes (Death, Life-Threatening, Hospitalization, Other)
  Sender: FDA-Public Use
  Company Number: JP-PFIZER INC-2013325474

PATIENT
  Age: 64 Year
  Sex: Female

DRUGS (10)
  1. LIPITOR [Suspect]
     Indication: HYPERLIPIDAEMIA
     Dosage: 10 MG, 1X/DAY
     Route: 048
     Dates: start: 20070321
  2. RHEUMATREX [Suspect]
     Indication: RHEUMATOID ARTHRITIS
     Dosage: 10 MG, WEEKLY
     Route: 048
  3. RHEUMATREX [Suspect]
     Dosage: 2 MG, 2X/WEEK
     Route: 048
     Dates: start: 20110118
  4. ACTEMRA [Suspect]
     Indication: RHEUMATOID ARTHRITIS
     Dosage: UNK
     Route: 042
     Dates: start: 20110519
  5. PROGRAF [Suspect]
     Indication: RHEUMATOID ARTHRITIS
     Dosage: 2 MG, 1X/DAY
     Route: 048
     Dates: start: 20080327
  6. TAKEPRON [Suspect]
     Indication: PROPHYLAXIS
     Dosage: 15 MG, 1X/DAY
     Route: 048
     Dates: start: 20101028
  7. VOLTAREN [Suspect]
     Indication: RHEUMATOID ARTHRITIS
     Dosage: 75 MG, 2X/DAY
     Route: 048
     Dates: start: 20110510
  8. LYRICA [Concomitant]
     Indication: RHEUMATOID ARTHRITIS
     Dosage: 50 MG, 2X/DAY
     Route: 048
     Dates: start: 20120625
  9. DEPAS [Concomitant]
     Indication: INSOMNIA
     Dosage: 0.5 MG, 1X/DAY
     Route: 048
     Dates: start: 200512
  10. PREDNISOLONE [Concomitant]
     Indication: RHEUMATOID ARTHRITIS
     Dosage: 1 MG, 1X/DAY
     Route: 048
     Dates: start: 200512

REACTIONS (7)
  - Intestinal haemorrhage [Fatal]
  - Shock haemorrhagic [Fatal]
  - Intestinal obstruction [Fatal]
  - Small intestine ulcer [Not Recovered/Not Resolved]
  - Pancytopenia [Recovered/Resolved]
  - Anaemia [Unknown]
  - Decreased appetite [Unknown]
